FAERS Safety Report 8432891-1 (Version None)
Quarter: 2012Q2

REPORT INFORMATION
  Report Type: 
  Country: None (occurrence: None)
  Receive Date: 20120613
  Receipt Date: 20120607
  Transmission Date: 20120825
  Serious: Yes (Hospitalization, Other)
  Sender: FDA-Public Use
  Company Number: GB-ROCHE-1065182

PATIENT
  Sex: Male
  Weight: 82 kg

DRUGS (9)
  1. ASPIRIN [Concomitant]
     Indication: MYOCARDIAL ISCHAEMIA
     Route: 048
  2. MELOXICAM [Concomitant]
     Indication: RHEUMATOID ARTHRITIS
     Route: 048
  3. TAMSULOSIN HCL [Concomitant]
     Indication: PROSTATISM
  4. PERINDOPRIL ERBUMINE [Concomitant]
  5. ACTEMRA [Suspect]
     Indication: RHEUMATOID ARTHRITIS
     Route: 042
     Dates: start: 20110322, end: 20120403
  6. BISOPROLOL FUMARATE [Concomitant]
     Indication: MYOCARDIAL ISCHAEMIA
     Route: 048
  7. ACETAMINOPHEN AND CODEINE PHOSPHATE [Concomitant]
     Indication: RHEUMATOID ARTHRITIS
     Dosage: 2 TABLETS, 30/500
     Route: 048
  8. FOLIC ACID [Concomitant]
     Indication: FOLATE DEFICIENCY
     Route: 048
  9. OMEPRAZOLE [Concomitant]

REACTIONS (3)
  - SCROTAL ABSCESS [None]
  - WHITE BLOOD CELL COUNT DECREASED [None]
  - NECROTISING FASCIITIS [None]
